FAERS Safety Report 16774459 (Version 2)
Quarter: 2020Q2

REPORT INFORMATION
  Report Type: Report from Study
  Country: None (occurrence: CA)
  Receive Date: 20190905
  Receipt Date: 20200504
  Transmission Date: 20200713
  Serious: Yes (Hospitalization, Other)
  Sender: FDA-Public Use
  Company Number: CA-ABBVIE-19K-028-2908083-00

PATIENT
  Age: 72 Year
  Sex: Male

DRUGS (1)
  1. HUMIRA [Suspect]
     Active Substance: ADALIMUMAB
     Indication: ANKYLOSING SPONDYLITIS
     Route: 058
     Dates: start: 20110708

REACTIONS (9)
  - Acne [Not Recovered/Not Resolved]
  - Intestinal obstruction [Unknown]
  - Medical device change [Unknown]
  - Intestinal resection [Unknown]
  - Gastrointestinal scarring [Unknown]
  - Vascular graft [Unknown]
  - Intestinal obstruction [Recovered/Resolved]
  - Unevaluable event [Not Recovered/Not Resolved]
  - Adhesion [Unknown]

NARRATIVE: CASE EVENT DATE: 2011
